FAERS Safety Report 4428017-1 (Version None)
Quarter: 2004Q3

REPORT INFORMATION
  Report Type: 
  Country: None (occurrence: None)
  Receive Date: 20040817
  Receipt Date: 20020715
  Transmission Date: 20050211
  Serious: Yes (Death, Life-Threatening, Hospitalization)
  Sender: FDA-Public Use
  Company Number: US-MERCK-0207USA01402

PATIENT
  Age: 60 Year
  Sex: Female
  Weight: 61 kg

DRUGS (28)
  1. CLARITIN-D [Concomitant]
     Indication: HYPERSENSITIVITY
     Route: 065
     Dates: start: 19990101
  2. LORAZEPAM [Concomitant]
     Route: 065
     Dates: start: 19990101
  3. REMERON [Concomitant]
     Route: 065
     Dates: end: 20010701
  4. PRILOSEC [Concomitant]
     Route: 065
     Dates: start: 19990101
  5. DITROPAN [Concomitant]
     Indication: POLLAKIURIA
     Route: 065
     Dates: start: 19990101
  6. DITROPAN [Concomitant]
     Route: 065
     Dates: start: 19990101
  7. PROMETHAZINE [Concomitant]
     Route: 065
     Dates: start: 19990101
  8. VIOXX [Suspect]
     Indication: ARTHRALGIA
     Route: 048
     Dates: start: 19990607, end: 20000511
  9. VIOXX [Suspect]
     Route: 048
     Dates: start: 19990607, end: 20000511
  10. VIOXX [Suspect]
     Route: 048
     Dates: start: 19990607, end: 20000511
  11. VIOXX [Suspect]
     Indication: BURSITIS
     Route: 048
     Dates: start: 19990607, end: 20000511
  12. VIOXX [Suspect]
     Route: 048
     Dates: start: 19990607, end: 20000511
  13. VIOXX [Suspect]
     Route: 048
     Dates: start: 19990607, end: 20000511
  14. TRIAMCINOLONE [Concomitant]
     Route: 065
     Dates: start: 19990101
  15. SOMA [Concomitant]
     Route: 065
     Dates: start: 19990101
  16. ZYRTEC [Concomitant]
     Route: 065
     Dates: start: 19990101
  17. CIPRO [Concomitant]
     Indication: INFECTION
     Route: 065
     Dates: start: 19990101
  18. VOLTAREN [Concomitant]
     Route: 065
     Dates: start: 19990101
  19. PREMPRO [Concomitant]
     Indication: HORMONE REPLACEMENT THERAPY
     Route: 065
     Dates: start: 20010608, end: 20010718
  20. TEQUIN [Concomitant]
     Route: 065
     Dates: start: 19990101
  21. HYDROXYZINE HYDROCHLORIDE [Concomitant]
     Route: 065
     Dates: start: 19990101
  22. PREVACID [Concomitant]
     Route: 065
     Dates: start: 19990101
  23. LORABID [Concomitant]
     Indication: INFECTION
     Route: 065
     Dates: start: 19990101
  24. VICODIN [Concomitant]
     Route: 065
     Dates: start: 19990101
  25. PROVENTIL REPETABS AND TABLETS [Concomitant]
     Route: 065
     Dates: start: 19990101
  26. ZITHROMAX [Concomitant]
     Route: 065
     Dates: start: 19990101
  27. BENZONATATE [Concomitant]
     Indication: COUGH
     Route: 065
     Dates: start: 19990101
  28. TUSSI-12 [Concomitant]
     Route: 065
     Dates: start: 19990101

REACTIONS (30)
  - ANGINA PECTORIS [None]
  - BLOOD CHOLESTEROL INCREASED [None]
  - CARDIAC ARREST [None]
  - CORONARY ARTERY ATHEROSCLEROSIS [None]
  - CORONARY ARTERY OCCLUSION [None]
  - CYSTOCELE [None]
  - DILATATION VENTRICULAR [None]
  - DYSPNOEA [None]
  - ELECTROCARDIOGRAM ST SEGMENT ABNORMAL [None]
  - FIBROMYALGIA [None]
  - HAEMORRHAGE [None]
  - HEART RATE INCREASED [None]
  - HEPATIC STEATOSIS [None]
  - HEPATITIS [None]
  - HEPATOMEGALY [None]
  - MUSCLE SPASMS [None]
  - MYOCARDIAL INFARCTION [None]
  - MYOCARDIAL ISCHAEMIA [None]
  - OXYGEN SATURATION DECREASED [None]
  - PELVIC PROLAPSE [None]
  - PLEURAL ADHESION [None]
  - PROCEDURAL COMPLICATION [None]
  - PULMONARY OEDEMA [None]
  - RHONCHI [None]
  - SINUS TACHYCARDIA [None]
  - STRESS INCONTINENCE [None]
  - SUDDEN CARDIAC DEATH [None]
  - VAGINAL PROLAPSE [None]
  - VENTRICULAR DYSFUNCTION [None]
  - WHEEZING [None]
